FAERS Safety Report 8459204-3 (Version None)
Quarter: 2012Q2

REPORT INFORMATION
  Report Type: 
  Country: None (occurrence: None)
  Receive Date: 20120622
  Receipt Date: 20120608
  Transmission Date: 20120825
  Serious: Yes (Hospitalization)
  Sender: FDA-Public Use
  Company Number: IE-US-EMD SERONO, INC.-7009394

PATIENT
  Sex: Female

DRUGS (2)
  1. REBIF [Suspect]
     Indication: RELAPSING-REMITTING MULTIPLE SCLEROSIS
     Route: 058
     Dates: start: 20010101, end: 20100611
  2. REBIF [Suspect]
     Route: 058
     Dates: start: 20100628

REACTIONS (10)
  - INTRACRANIAL HYPOTENSION [None]
  - MALAISE [None]
  - POST LUMBAR PUNCTURE SYNDROME [None]
  - INDURATION [None]
  - HEADACHE [None]
  - INFLUENZA LIKE ILLNESS [None]
  - OROPHARYNGEAL PAIN [None]
  - INJECTION SITE PAIN [None]
  - INJECTION SITE ERYTHEMA [None]
  - INJECTION SITE REACTION [None]
